FAERS Safety Report 4338144-5 (Version None)
Quarter: 2004Q2

REPORT INFORMATION
  Report Type: 
  Country: None (occurrence: None)
  Receive Date: 20040407
  Receipt Date: 20040329
  Transmission Date: 20050107
  Serious: Yes (Hospitalization)
  Sender: FDA-Public Use
  Company Number: 2004206413PL

PATIENT
  Age: 4 Month
  Sex: Male
  Weight: 6.8 kg

DRUGS (1)
  1. DEPO-PROVERA [Suspect]
     Indication: CONTRACEPTION
     Dosage: 150 MG,  1ST AND SINGLE INJ., INTRAMUSCULAR
     Route: 030
     Dates: start: 20040101, end: 20040101

REACTIONS (6)
  - ACTIVATED PARTIAL THROMBOPLASTIN TIME PROLONGED [None]
  - COMPLICATIONS OF MATERNAL EXPOSURE TO THERAPEUTIC DRUGS [None]
  - DIARRHOEA [None]
  - DRUG EXPOSURE VIA BREAST MILK [None]
  - HAEMORRHAGIC DISORDER [None]
  - PLATELET COUNT INCREASED [None]
